FAERS Safety Report 4363794-X (Version None)
Quarter: 2004Q2

REPORT INFORMATION
  Report Type: 
  Country: None (occurrence: None)
  Receive Date: 20040524
  Receipt Date: 20040324
  Transmission Date: 20050107
  Serious: Yes (Hospitalization)
  Sender: FDA-Public Use
  Company Number: DE-MERCK-0403DEU00163

PATIENT
  Age: 34 Year
  Sex: Male
  Weight: 111 kg

DRUGS (8)
  1. ATORVASTATIN CALCIUM [Concomitant]
     Indication: LIPIDS INCREASED
     Route: 048
     Dates: start: 20010801, end: 20021125
  2. CERIVASTATIN SODIUM [Concomitant]
     Indication: LIPIDS INCREASED
     Route: 048
     Dates: start: 19990101, end: 20010801
  3. CITALOPRAM HYDROBROMIDE [Concomitant]
     Indication: DEPRESSION
     Route: 048
     Dates: start: 19971001, end: 20030708
  4. EPROSARTAN [Concomitant]
     Indication: HYPERTENSION
     Route: 048
     Dates: start: 19990101, end: 20030707
  5. EPROSARTAN [Concomitant]
     Route: 048
     Dates: start: 20030708
  6. ESOMEPRAZOLE MAGNESIUM [Suspect]
     Route: 048
     Dates: end: 20031001
  7. HYPERICIN [Concomitant]
     Indication: DEPRESSION
     Route: 048
     Dates: start: 19971001, end: 20000901
  8. SINGULAIR [Suspect]
     Indication: ASTHMA
     Route: 048
     Dates: start: 19990101, end: 20040207

REACTIONS (11)
  - BLOOD CREATINE PHOSPHOKINASE INCREASED [None]
  - DIABETES MELLITUS NON-INSULIN-DEPENDENT [None]
  - FALL [None]
  - FIBROMYALGIA [None]
  - JOINT SPRAIN [None]
  - MUSCLE TIGHTNESS [None]
  - MYALGIA [None]
  - MYOPATHY [None]
  - POLYMYOSITIS [None]
  - ROAD TRAFFIC ACCIDENT [None]
  - SPINAL DISORDER [None]
